FAERS Safety Report 11158709 (Version 1)
Quarter: 2015Q2

REPORT INFORMATION
  Report Type: Spontaneous
  Country: FR (occurrence: FR)
  Receive Date: 20150603
  Receipt Date: 20150603
  Transmission Date: 20150821
  Serious: Yes (Hospitalization)
  Sender: FDA-Public Use
  Company Number: FR-BAYER-2015-279924

PATIENT
  Age: 65 Year
  Sex: Male

DRUGS (9)
  1. ELISOR [Concomitant]
     Active Substance: PRAVASTATIN SODIUM
  2. FLAGYL [Suspect]
     Active Substance: METRONIDAZOLE\METRONIDAZOLE HYDROCHLORIDE
     Indication: PANCREATITIS
     Dosage: 500 MG, UNK
     Route: 048
     Dates: start: 20150503, end: 20150504
  3. LOXEN [Concomitant]
     Active Substance: NICARDIPINE HYDROCHLORIDE
  4. CORDARONE [Concomitant]
     Active Substance: AMIODARONE HYDROCHLORIDE
  5. LASILIX [Concomitant]
     Active Substance: FUROSEMIDE
  6. COVERSYL [PERINDOPRIL] [Concomitant]
  7. NOCTAMIDE [Concomitant]
     Active Substance: LORMETAZEPAM
  8. CIFLOX [Suspect]
     Active Substance: CIPROFLOXACIN
     Indication: PANCREATITIS
     Dosage: UNK
     Route: 048
     Dates: start: 20150503, end: 20150504
  9. VELMETIA [Concomitant]
     Active Substance: METFORMIN\SITAGLIPTIN

REACTIONS (1)
  - Lipase increased [Unknown]

NARRATIVE: CASE EVENT DATE: 20150504
